FAERS Safety Report 5734696-9 (Version None)
Quarter: 2008Q2

REPORT INFORMATION
  Report Type: 
  Country: None (occurrence: None)
  Receive Date: 20080508
  Receipt Date: 20080508
  Transmission Date: 20081010
  Serious: Yes (Life-Threatening)
  Sender: FDA-Public Use
  Company Number: None

PATIENT
  Age: 54 Year
  Sex: Female
  Weight: 70.3075 kg

DRUGS (2)
  1. DIGITEK 250MCG TWO TAB. A DAY BERTEK [Suspect]
     Indication: ATRIAL TACHYCARDIA
     Dosage: TWO TABLETS DAILY PO
     Route: 048
     Dates: start: 20080301, end: 20080403
  2. DIGITEK 250MCG TWO TAB. A DAY BERTEK [Suspect]
     Indication: CARDIAC DISORDER
     Dosage: TWO TABLETS DAILY PO
     Route: 048
     Dates: start: 20080301, end: 20080403

REACTIONS (7)
  - CHEST DISCOMFORT [None]
  - EXTRASYSTOLES [None]
  - FATIGUE [None]
  - HEADACHE [None]
  - HYPERTENSION [None]
  - MALAISE [None]
  - PHARMACEUTICAL PRODUCT COMPLAINT [None]
